FAERS Safety Report 4689243-X (Version None)
Quarter: 2005Q2

REPORT INFORMATION
  Report Type: 
  Country: None (occurrence: None)
  Receive Date: 20050613
  Receipt Date: 20050603
  Transmission Date: 20051028
  Serious: Yes (Other)
  Sender: FDA-Public Use
  Company Number: JP-MERCK-0506USA01121

PATIENT
  Age: 82 Year
  Sex: Female

DRUGS (7)
  1. PEPCID [Suspect]
     Route: 048
     Dates: start: 19950101, end: 20030211
  2. BENIDIPINE HYDROCHLORIDE [Suspect]
     Route: 048
     Dates: start: 19950101, end: 20030211
  3. NILVADIPINE [Suspect]
     Route: 048
     Dates: start: 19950101, end: 20030211
  4. TEPRENONE [Suspect]
     Route: 048
     Dates: start: 19950101, end: 20030211
  5. AFLOQUALONE [Suspect]
     Route: 048
     Dates: start: 19950101, end: 20030211
  6. [THERAPY UNSPECIFIED] [Suspect]
     Route: 048
     Dates: start: 19950101, end: 20030211
  7. LOXOPROFEN SODIUM [Suspect]
     Route: 048
     Dates: start: 20021201, end: 20030211

REACTIONS (10)
  - BLISTER [None]
  - DERMATITIS BULLOUS [None]
  - EOSINOPHIL PERCENTAGE INCREASED [None]
  - EOSINOPHILIA [None]
  - ERYTHEMA [None]
  - LICHEN PLANUS [None]
  - LYMPHOCYTE PERCENTAGE DECREASED [None]
  - RASH GENERALISED [None]
  - RASH PAPULAR [None]
  - SCAB [None]
